FAERS Safety Report 8090788-3 (Version None)
Quarter: 2012Q1

REPORT INFORMATION
  Report Type: 
  Country: None (occurrence: None)
  Receive Date: 20120125
  Receipt Date: 20120116
  Transmission Date: 20120608
  Serious: Yes (Hospitalization)
  Sender: FDA-Public Use
  Company Number: 1164948

PATIENT
  Age: 1 Decade
  Sex: Male
  Weight: 2.41 kg

DRUGS (4)
  1. MIDAZOLAM [Concomitant]
  2. TPN /00897001/ [Concomitant]
  3. FENTANYL CITRATE [Suspect]
     Indication: ANALGESIC THERAPY
     Dosage: DAY 1: 5 MCG/KG, INTRAVENOUS
     Route: 042
  4. MORPHINE SULFATE [Suspect]
     Indication: ANALGESIC THERAPY
     Dosage: DAY 1: 20 MCG/KG/H, INTRAVENOUS
     Route: 042

REACTIONS (15)
  - HYPERAESTHESIA [None]
  - IRRITABILITY [None]
  - AGITATION [None]
  - INTESTINAL ISCHAEMIA [None]
  - COAGULOPATHY [None]
  - DRUG EFFECT DECREASED [None]
  - ABDOMINAL DISTENSION [None]
  - POST PROCEDURAL COMPLICATION [None]
  - HYPERACUSIS [None]
  - HEPATIC FUNCTION ABNORMAL [None]
  - SEPSIS NEONATAL [None]
  - RESPIRATORY DISORDER NEONATAL [None]
  - CONDITION AGGRAVATED [None]
  - PHOTOPHOBIA [None]
  - TACHYCARDIA [None]
